FAERS Safety Report 9324653 (Version 2)
Quarter: 2015Q1

REPORT INFORMATION
  Report Type: Spontaneous
  Country: US (occurrence: US)
  Receive Date: 20130603
  Receipt Date: 20150113
  Transmission Date: 20150721
  Serious: Yes (Hospitalization, Other)
  Sender: FDA-Public Use
  Company Number: US-GLAXOSMITHKLINE-A1024911A

PATIENT
  Age: 62 Year
  Sex: Male

DRUGS (6)
  1. METOPROLOL [Concomitant]
     Active Substance: METOPROLOL
  2. ALBUTEROL. [Suspect]
     Active Substance: ALBUTEROL
     Indication: BRONCHITIS
     Dosage: UNK, U
     Route: 055
  3. CIPRO [Concomitant]
     Active Substance: CIPROFLOXACIN HYDROCHLORIDE
  4. MESALAMINE. [Concomitant]
     Active Substance: MESALAMINE
  5. VENTOLIN HFA [Suspect]
     Active Substance: ALBUTEROL SULFATE
     Indication: BRONCHITIS
     Route: 055
     Dates: start: 20130512, end: 20130514
  6. INSULIN [Concomitant]
     Active Substance: INSULIN NOS

REACTIONS (7)
  - Cough [Recovering/Resolving]
  - Life support [Recovered/Resolved]
  - Drug ineffective [Unknown]
  - Throat tightness [Recovering/Resolving]
  - Oropharyngeal pain [Recovering/Resolving]
  - Mechanical ventilation [Recovered/Resolved]
  - Amnesia [Unknown]

NARRATIVE: CASE EVENT DATE: 201305
